FAERS Safety Report 11879132 (Version 2)
Quarter: 2016Q1

REPORT INFORMATION
  Report Type: Report from Study
  Country: CA (occurrence: CA)
  Receive Date: 20151230
  Receipt Date: 20160112
  Transmission Date: 20160526
  Serious: Yes (Other)
  Sender: FDA-Public Use
  Company Number: CA-ALEXION PHARMACEUTICALS INC-A201505317

PATIENT
  Age: 26 Year
  Sex: Female
  Weight: 104.31 kg

DRUGS (9)
  1. SOLIRIS [Suspect]
     Active Substance: ECULIZUMAB
     Dosage: 900 MG, Q2W
     Route: 042
     Dates: start: 20120201
  2. ALEVE [Concomitant]
     Active Substance: NAPROXEN SODIUM
     Indication: HEADACHE
     Dosage: 220 MG, Q4H CO PRN
     Route: 048
     Dates: start: 20130408
  3. SOLIRIS [Suspect]
     Active Substance: ECULIZUMAB
     Dosage: 900 MG, Q2W
     Route: 042
     Dates: start: 20120201
  4. FOLIC ACID. [Concomitant]
     Active Substance: FOLIC ACID
     Indication: SUPPLEMENTATION THERAPY
     Dosage: 5 MG, QID
     Route: 048
     Dates: start: 20111114
  5. TYLENOL [Concomitant]
     Active Substance: ACETAMINOPHEN
     Indication: PAIN
  6. MICRONOR [Concomitant]
     Active Substance: NORETHINDRONE
     Indication: CONTRACEPTION
     Dosage: 0.35 MG, QD
     Route: 048
     Dates: start: 20100101
  7. TYLENOL [Concomitant]
     Active Substance: ACETAMINOPHEN
     Indication: HEADACHE
     Dosage: 1000 MG, PRN
     Route: 048
     Dates: start: 20120409
  8. SOLIRIS [Suspect]
     Active Substance: ECULIZUMAB
     Indication: PAROXYSMAL NOCTURNAL HAEMOGLOBINURIA
     Dosage: 600 MG, QW
     Route: 042
     Dates: start: 20120104, end: 20120125
  9. NOVO-GESIC [Concomitant]
     Indication: HEADACHE
     Dosage: 500 MG, PRN (1 TABLET)
     Route: 048
     Dates: start: 20121219

REACTIONS (5)
  - Nasal congestion [Not Recovered/Not Resolved]
  - Haemoglobin decreased [Recovered/Resolved]
  - Fatigue [Not Recovered/Not Resolved]
  - Sneezing [Not Recovered/Not Resolved]
  - Cough [Not Recovered/Not Resolved]

NARRATIVE: CASE EVENT DATE: 20151215
